FAERS Safety Report 6723861-X (Version None)
Quarter: 2010Q2

REPORT INFORMATION
  Report Type: 
  Country: None (occurrence: None)
  Receive Date: 20100513
  Receipt Date: 20100305
  Transmission Date: 20101027
  Serious: Yes (Death)
  Sender: FDA-Public Use
  Company Number: CH-ROCHE-674117

PATIENT
  Age: 55 Year

DRUGS (3)
  1. TAMIFLU [Suspect]
     Indication: INFLUENZA
     Dosage: FOR FIVE DAYS
     Route: 065
  2. TAMIFLU [Suspect]
     Dosage: ROUTE: ORAL
     Route: 065
  3. ZANAMIVIR [Suspect]
     Indication: INFLUENZA
     Route: 042

REACTIONS (3)
  - DRUG INEFFECTIVE [None]
  - PATHOGEN RESISTANCE [None]
  - RENAL FAILURE [None]
